FAERS Safety Report 4847527-6 (Version None)
Quarter: 2005Q4

REPORT INFORMATION
  Report Type: 
  Country: None (occurrence: None)
  Receive Date: 20051207
  Receipt Date: 20050804
  Transmission Date: 20060501
  Serious: Yes (Hospitalization)
  Sender: FDA-Public Use
  Company Number: PHEH2005US08694

PATIENT
  Age: 63 Year
  Sex: Male
  Weight: 169 kg

DRUGS (9)
  1. GLEEVEC [Suspect]
     Indication: CHRONIC MYELOID LEUKAEMIA
     Dosage: 100 MG, QD
     Route: 048
     Dates: start: 20050301
  2. GLEEVEC [Suspect]
     Dosage: 200 MG, QD
     Route: 048
     Dates: end: 20050323
  3. INVESTIGATIONAL DRUG [Concomitant]
     Indication: ANALGESIC EFFECT
     Dosage: 100 UG, PRN
     Route: 002
     Dates: start: 20050518, end: 20050527
  4. NEORAL [Concomitant]
  5. ARANESP [Concomitant]
     Dates: start: 20050502
  6. VENOFER [Concomitant]
     Dates: start: 20050518, end: 20050518
  7. DURAGESIC-100 [Concomitant]
     Route: 062
     Dates: start: 20050509
  8. CARDIZEM [Concomitant]
  9. LASIX [Concomitant]
     Dates: end: 20050401

REACTIONS (8)
  - ANAEMIA OF MALIGNANT DISEASE [None]
  - FATIGUE [None]
  - GENERALISED OEDEMA [None]
  - HAEMATOCRIT DECREASED [None]
  - HEPATIC CIRRHOSIS [None]
  - OEDEMA PERIPHERAL [None]
  - PORTAL HYPERTENSION [None]
  - WHEEZING [None]
